FAERS Safety Report 8500373-4 (Version None)
Quarter: 2012Q3

REPORT INFORMATION
  Report Type: 
  Country: None (occurrence: None)
  Receive Date: 20120710
  Receipt Date: 20120627
  Transmission Date: 20120928
  Serious: Yes (Hospitalization)
  Sender: FDA-Public Use
  Company Number: ES-UCBSA-060704

PATIENT
  Age: 43 Year
  Sex: Female

DRUGS (6)
  1. GABAPENTIN [Suspect]
  2. TEGRETOL [Suspect]
     Dosage: DOSE: 200-800-600 MG
  3. VIMPAT [Suspect]
     Dates: start: 20101001
  4. RIBOFLAVIN CAP [Suspect]
     Dosage: 200 MG DAILY
  5. CLOBAZAM [Suspect]
     Dates: end: 20120101
  6. PHENOBARBITAL TAB [Suspect]

REACTIONS (4)
  - METABOLIC MYOPATHY [None]
  - AMNESIA [None]
  - POLYNEUROPATHY [None]
  - WEIGHT DECREASED [None]
